FAERS Safety Report 8159091-7 (Version None)
Quarter: 2012Q1

REPORT INFORMATION
  Report Type: 
  Country: None (occurrence: None)
  Receive Date: 20120103
  Receipt Date: 20110909
  Transmission Date: 20120608
  Serious: No
  Sender: FDA-Public Use
  Company Number: AE-2011-001427

PATIENT
  Age: 50 Year
  Sex: Male
  Weight: 90.7194 kg

DRUGS (7)
  1. JANUVIA [Concomitant]
  2. RIBAVIRIN [Concomitant]
  3. LISINOPRIL [Concomitant]
  4. GLIPIZIDE XL (GLIPIZIDE) [Concomitant]
  5. INCIVEK [Suspect]
     Dosage: 2250 MG (750 MG, 1 IN 8 HR), ORAL
     Route: 048
     Dates: start: 20110624
  6. NEUPOGEN [Concomitant]
  7. PEGASYS [Concomitant]

REACTIONS (4)
  - DIZZINESS [None]
  - NAUSEA [None]
  - FATIGUE [None]
  - WEIGHT DECREASED [None]
